FAERS Safety Report 9171661 (Version 2)
Quarter: 2013Q2

REPORT INFORMATION
  Report Type: Report from Study
  Country: US (occurrence: US)
  Receive Date: 20130319
  Receipt Date: 20130530
  Transmission Date: 20140414
  Serious: Yes (Hospitalization)
  Sender: FDA-Public Use
  Company Number: US-SHIRE-ALL1-2013-01495

PATIENT
  Age: 17 Year
  Sex: Male
  Weight: 34.7 kg

DRUGS (3)
  1. IDURSULFASE [Suspect]
     Indication: MUCOPOLYSACCHARIDOSIS II
     Dosage: 0.5 MG/KG, 1X/WEEK
     Route: 041
     Dates: start: 20040914
  2. PREGABALIN [Concomitant]
     Indication: PAIN IN EXTREMITY
     Dosage: 75 MG, 2X/DAY:BID
     Route: 048
     Dates: start: 20070720
  3. AMITRIPTYLINE [Concomitant]
     Indication: ANTIDEPRESSANT THERAPY
     Dosage: 20 MG, 1X/DAY:QD
     Route: 048
     Dates: start: 20060926

REACTIONS (3)
  - Craniectomy [Unknown]
  - Cervical spinal stenosis [Unknown]
  - Adhesion [Unknown]
